FAERS Safety Report 4537043-3 (Version None)
Quarter: 2004Q4

REPORT INFORMATION
  Report Type: 
  Country: None (occurrence: None)
  Receive Date: 20041223
  Receipt Date: 20040910
  Transmission Date: 20050328
  Serious: No
  Sender: FDA-Public Use
  Company Number: US-BRISTOL-MYERS SQUIBB COMPANY-12699294

PATIENT
  Sex: Male

DRUGS (4)
  1. REYATAZ [Suspect]
  2. ZERIT [Suspect]
  3. PREDNISONE TAB [Suspect]
  4. VIREAD [Suspect]

REACTIONS (1)
  - ADVERSE DRUG REACTION [None]
